FAERS Safety Report 7103105-X (Version None)
Quarter: 2010Q4

REPORT INFORMATION
  Report Type: 
  Country: None (occurrence: None)
  Receive Date: 20101115
  Receipt Date: 20080414
  Transmission Date: 20110411
  Serious: No
  Sender: FDA-Public Use
  Company Number: US-KINGPHARMUSA00001-K200800447

PATIENT
  Sex: Male

DRUGS (7)
  1. AVINZA [Suspect]
     Indication: PAIN
     Dosage: 30 MG, QD
     Route: 048
     Dates: start: 20080411
  2. PAXIL [Concomitant]
     Indication: ANXIETY
     Dosage: 40 MG, QD
     Route: 048
  3. LORAZEPAM [Concomitant]
     Dosage: 4 MG, QD
     Route: 048
  4. TRAZODONE [Concomitant]
     Dosage: 150 MG, QD
     Route: 048
  5. LISINOPRIL AND HYDROCHLOROTHIAZIDE [Concomitant]
     Indication: HYPERTENSION
     Dosage: UNK, QD
     Route: 048
  6. CALAN               SR               /00014302/ [Concomitant]
     Dosage: 240 UNK, QD
     Route: 048
  7. CRESTOR [Concomitant]
     Dosage: 20 MG, QD
     Route: 048

REACTIONS (2)
  - PRURITUS [None]
  - RASH [None]
